FAERS Safety Report 5533691-2 (Version None)
Quarter: 2007Q4

REPORT INFORMATION
  Report Type: 
  Country: None (occurrence: None)
  Receive Date: 20071204
  Receipt Date: 20071126
  Transmission Date: 20080405
  Serious: Yes (Death)
  Sender: FDA-Public Use
  Company Number: US-ABBOTT-07P-163-0426047-00

PATIENT
  Age: 77 Year
  Sex: Male

DRUGS (3)
  1. VICODIN [Suspect]
     Indication: PAIN
     Dates: end: 20071021
  2. PARACETAMOL [Suspect]
     Indication: PAIN
     Dates: end: 20071021
  3. ANTINEOPLASTIC AGENTS [Concomitant]
     Indication: DRUG USE FOR UNKNOWN INDICATION

REACTIONS (2)
  - DRUG ADMINISTRATION ERROR [None]
  - HEPATOTOXICITY [None]
